FAERS Safety Report 5639786-7 (Version None)
Quarter: 2008Q1

REPORT INFORMATION
  Report Type: 
  Country: None (occurrence: None)
  Receive Date: 20080227
  Receipt Date: 20080225
  Transmission Date: 20080703
  Serious: Yes (Death, Hospitalization)
  Sender: FDA-Public Use
  Company Number: US-BRISTOL-MYERS SQUIBB COMPANY-14059521

PATIENT
  Age: 55 Year
  Sex: Female

DRUGS (9)
  1. CARBOPLATIN [Suspect]
     Indication: GLIOBLASTOMA MULTIFORME
     Dosage: DOSE LAST RECEIVED ON 28-DEC-2007.
     Route: 042
     Dates: start: 20071228, end: 20071228
  2. ENZASTAURIN [Suspect]
     Indication: GLIOBLASTOMA MULTIFORME
     Dosage: FROM 22DEC2007-07JAN08 (17DAYS)-500MG DAILY 1/D, PO.
     Route: 048
     Dates: start: 20071221, end: 20071221
  3. CORTICOSTEROID [Concomitant]
  4. DECADRON [Concomitant]
  5. KEPPRA [Concomitant]
  6. BACTRIM [Concomitant]
  7. PREVACID [Concomitant]
  8. MULTI-VITAMIN [Concomitant]
  9. LANSOPRAZOLE [Concomitant]

REACTIONS (2)
  - ABDOMINAL ABSCESS [None]
  - DEATH [None]
